FAERS Safety Report 23513992 (Version 1)
Quarter: 2024Q1

REPORT INFORMATION
  Report Type: Spontaneous
  Country: NL (occurrence: NL)
  Receive Date: 20240212
  Receipt Date: 20240212
  Transmission Date: 20240410
  Serious: Yes (Other)
  Sender: FDA-Public Use
  Company Number: None

PATIENT
  Age: 32 Year
  Sex: Female
  Weight: 104 kg

DRUGS (1)
  1. PROSTIN E2 [Suspect]
     Active Substance: DINOPROSTONE
     Indication: Labour induction
     Dosage: FREQ:6 H;2X 1MG IN 6 HOUR
     Dates: start: 20231107

REACTIONS (1)
  - Generalised tonic-clonic seizure [Unknown]
